FAERS Safety Report 17336285 (Version 1)
Quarter: 2020Q1

REPORT INFORMATION
  Report Type: Spontaneous
  Country: US (occurrence: US)
  Receive Date: 20200129
  Receipt Date: 20200129
  Transmission Date: 20200409
  Serious: No
  Sender: FDA-Public Use
  Company Number: US-009507513-2001USA008815

PATIENT
  Sex: Female

DRUGS (2)
  1. INTRON A [Suspect]
     Active Substance: INTERFERON ALFA-2B
     Indication: HEPATITIS VIRAL
     Dosage: UNK, TIW(3 TIME WEEKLY) (INJECTION INTO THE SKIN)
     Dates: start: 20190119
  2. PREDNISONE. [Concomitant]
     Active Substance: PREDNISONE
     Dosage: 20 MILLIGRAM (STOP DATE 26-JUL-2020)
     Dates: start: 20200108

REACTIONS (1)
  - Fatigue [Unknown]
